FAERS Safety Report 13879734 (Version 2)
Quarter: 2017Q3

REPORT INFORMATION
  Report Type: Spontaneous
  Country: US (occurrence: US)
  Receive Date: 20170818
  Receipt Date: 20170911
  Transmission Date: 20171127
  Serious: No
  Sender: FDA-Public Use
  Company Number: US-BRISTOL-MYERS SQUIBB COMPANY-BMS-2017-074439

PATIENT
  Sex: Male

DRUGS (1)
  1. ABILIFY [Suspect]
     Active Substance: ARIPIPRAZOLE
     Indication: MAJOR DEPRESSION
     Dosage: 10 MG, UNK
     Route: 065
     Dates: start: 2010, end: 20140820

REACTIONS (6)
  - Compulsive shopping [Unknown]
  - Hypersexuality [Unknown]
  - Weight increased [Unknown]
  - Anxiety [Unknown]
  - Emotional distress [Unknown]
  - Economic problem [Unknown]
